FAERS Safety Report 6955762-6 (Version None)
Quarter: 2010Q3

REPORT INFORMATION
  Report Type: 
  Country: None (occurrence: None)
  Receive Date: 20100830
  Receipt Date: 20100708
  Transmission Date: 20110219
  Serious: Yes (Other)
  Sender: FDA-Public Use
  Company Number: US-AMGEN-QUU416000

PATIENT
  Sex: Male
  Weight: 65.8 kg

DRUGS (3)
  1. NPLATE [Suspect]
     Indication: IDIOPATHIC THROMBOCYTOPENIC PURPURA
     Route: 058
     Dates: start: 20100111, end: 20100312
  2. INTERFERON [Concomitant]
     Dates: start: 20091101, end: 20100312
  3. RIBAVIRIN [Concomitant]
     Dates: start: 20091101, end: 20100312

REACTIONS (1)
  - DRUG INEFFECTIVE [None]
